FAERS Safety Report 8719213 (Version 3)
Quarter: 2013Q1

REPORT INFORMATION
  Report Type: Spontaneous
  Country: US (occurrence: US)
  Receive Date: 20120813
  Receipt Date: 20130305
  Transmission Date: 20140127
  Serious: No
  Sender: FDA-Public Use
  Company Number: US-BIOGENIDEC-2012BI030193

PATIENT
  Age: 51 None
  Sex: Female

DRUGS (1)
  1. TYSABRI [Suspect]
     Indication: MULTIPLE SCLEROSIS
     Route: 042
     Dates: start: 20110408

REACTIONS (8)
  - Colitis microscopic [Not Recovered/Not Resolved]
  - Gastric disorder [Unknown]
  - Anaemia [Unknown]
  - Cholecystectomy [Unknown]
  - Weight increased [Unknown]
  - Faecal incontinence [Not Recovered/Not Resolved]
  - Memory impairment [Not Recovered/Not Resolved]
  - Fatigue [Not Recovered/Not Resolved]
